FAERS Safety Report 7290739-5 (Version None)
Quarter: 2011Q1

REPORT INFORMATION
  Report Type: 
  Country: None (occurrence: None)
  Receive Date: 20110214
  Receipt Date: 20110207
  Transmission Date: 20110831
  Serious: Yes (Other)
  Sender: FDA-Public Use
  Company Number: US-ROCHE-751881

PATIENT
  Sex: Male
  Weight: 104.3 kg

DRUGS (2)
  1. ACCUTANE [Suspect]
     Indication: ACNE
     Route: 048
     Dates: start: 20010209
  2. ACCUTANE [Suspect]
     Route: 048
     Dates: start: 20010316, end: 20010901

REACTIONS (9)
  - DIARRHOEA [None]
  - LIP DRY [None]
  - DRY EYE [None]
  - DRY SKIN [None]
  - GASTROOESOPHAGEAL REFLUX DISEASE [None]
  - EPISTAXIS [None]
  - DYSPEPSIA [None]
  - COLITIS ULCERATIVE [None]
  - INTESTINAL HAEMORRHAGE [None]
